FAERS Safety Report 9281282 (Version 2)
Quarter: 2013Q2

REPORT INFORMATION
  Report Type: Spontaneous
  Country: US (occurrence: None)
  Receive Date: 20130502
  Receipt Date: 20130524
  Transmission Date: 20140414
  Serious: Yes (Other)
  Sender: FDA-Public Use
  Company Number: M-13-011

PATIENT
  Age: 3 Year
  Sex: Male

DRUGS (7)
  1. ACETAZOLAMIDE [Suspect]
     Indication: SLEEP APNOEA SYNDROME
     Dosage: 2ML (25MG/ML) LIQUID SUSP
     Dates: start: 201203
  2. PREVACID SOLUTABS [Concomitant]
  3. LIQUID ZANTAC [Concomitant]
  4. FLONASE NASAL SPRAY [Concomitant]
  5. LIQUID CHILDREN^S CLARITIN [Concomitant]
  6. FERROUS SULFATE DROPS [Concomitant]
  7. MIRALAX-PM [Concomitant]

REACTIONS (7)
  - Urine output decreased [None]
  - Crystal urine present [None]
  - Abdominal discomfort [None]
  - Dysuria [None]
  - Urine odour abnormal [None]
  - Protein urine present [None]
  - Chromaturia [None]
